FAERS Safety Report 21735544 (Version 6)
Quarter: 2023Q4

REPORT INFORMATION
  Report Type: Report from Study
  Country: US (occurrence: US)
  Receive Date: 20221215
  Receipt Date: 20231214
  Transmission Date: 20240110
  Serious: No
  Sender: FDA-Public Use
  Company Number: US-002147023-NVSC2022US287093

PATIENT
  Sex: Female

DRUGS (1)
  1. KESIMPTA [Suspect]
     Active Substance: OFATUMUMAB
     Indication: Product used for unknown indication
     Dosage: UNK
     Route: 058

REACTIONS (7)
  - Gait disturbance [Unknown]
  - Back disorder [Unknown]
  - Fall [Unknown]
  - Balance disorder [Unknown]
  - Vertigo [Unknown]
  - Intervertebral disc degeneration [Unknown]
  - Condition aggravated [Unknown]
